FAERS Safety Report 20503416 (Version 2)
Quarter: 2022Q1

REPORT INFORMATION
  Report Type: Spontaneous
  Country: US (occurrence: US)
  Receive Date: 20220222
  Receipt Date: 20220330
  Transmission Date: 20220423
  Serious: Yes (Disabling)
  Sender: FDA-Public Use
  Company Number: US-JNJFOC-20220228726

PATIENT
  Sex: Male

DRUGS (3)
  1. OPSUMIT [Interacting]
     Active Substance: MACITENTAN
     Indication: Product used for unknown indication
     Route: 048
  2. DILTIAZEM [Interacting]
     Active Substance: DILTIAZEM
     Indication: Product used for unknown indication
     Route: 065
  3. AMBRISENTAN [Suspect]
     Active Substance: AMBRISENTAN
     Indication: Pulmonary vascular disorder
     Route: 065
     Dates: start: 20210906, end: 20211012

REACTIONS (4)
  - Peripheral swelling [Not Recovered/Not Resolved]
  - Somnolence [Unknown]
  - Drug interaction [Unknown]
  - Product dose omission issue [Unknown]
